FAERS Safety Report 19678141 (Version 1)
Quarter: 2021Q3

REPORT INFORMATION
  Report Type: Spontaneous
  Country: KR (occurrence: KR)
  Receive Date: 20210810
  Receipt Date: 20210810
  Transmission Date: 20211014
  Serious: Yes (Death, Hospitalization)
  Sender: FDA-Public Use
  Company Number: KR-SUN PHARMACEUTICAL INDUSTRIES LTD-2021RR-307231

PATIENT
  Age: 52 Year
  Sex: Male

DRUGS (9)
  1. NORADRENALINE [Suspect]
     Active Substance: NOREPINEPHRINE
     Dosage: 1.4 UG/MIN/KG
     Route: 065
  2. ADRENALINE [Suspect]
     Active Substance: EPINEPHRINE
     Indication: SEPTIC SHOCK
     Dosage: 0.10 UG/MIN/KG
     Route: 065
  3. DOPAMINE [Suspect]
     Active Substance: DOPAMINE HYDROCHLORIDE
     Indication: SEPTIC SHOCK
     Dosage: 15 UG/MIN/KG
     Route: 042
  4. HYDROCORTISONE. [Suspect]
     Active Substance: HYDROCORTISONE
     Indication: SEPTIC SHOCK
     Dosage: 50 MILLIGRAM, QID
     Route: 042
  5. CEFOTAXIME [Suspect]
     Active Substance: CEFOTAXIME SODIUM
     Indication: CHOLERA
     Dosage: 2 GRAM, TID
     Route: 042
  6. DOPAMINE [Suspect]
     Active Substance: DOPAMINE HYDROCHLORIDE
     Dosage: 22.5 UG/MIN/KG
     Route: 065
  7. CEFEPIME [Suspect]
     Active Substance: CEFEPIME HYDROCHLORIDE
     Indication: CHOLERA
     Dosage: 1 GRAM, QD
     Route: 042
  8. DOXYCYCLINE. [Suspect]
     Active Substance: DOXYCYCLINE
     Indication: CHOLERA
     Dosage: 100 MILLIGRAM, BID
     Route: 048
  9. NORADRENALINE [Suspect]
     Active Substance: NOREPINEPHRINE
     Indication: SEPTIC SHOCK
     Dosage: 0.5 UG/MIN/KG
     Route: 042

REACTIONS (1)
  - Drug ineffective [Fatal]
